FAERS Safety Report 7335423-4 (Version None)
Quarter: 2011Q1

REPORT INFORMATION
  Report Type: 
  Country: None (occurrence: None)
  Receive Date: 20110302
  Receipt Date: 20110302
  Transmission Date: 20110831
  Serious: Yes (Hospitalization)
  Sender: FDA-Public Use
  Company Number: None

PATIENT
  Age: 24 Year
  Sex: Male
  Weight: 125 kg

DRUGS (1)
  1. RISPERIDONE [Suspect]
     Dosage: 2 MG HS PO
     Route: 048
     Dates: start: 20110223, end: 20110224

REACTIONS (16)
  - LOSS OF CONSCIOUSNESS [None]
  - SINUS CONGESTION [None]
  - CHEST PAIN [None]
  - CONFUSIONAL STATE [None]
  - PYREXIA [None]
  - FEELING ABNORMAL [None]
  - HYPERHIDROSIS [None]
  - DIZZINESS [None]
  - FLUSHING [None]
  - HYPERTENSION [None]
  - ANAPHYLACTIC REACTION [None]
  - FEELING HOT [None]
  - TACHYCARDIA [None]
  - ANXIETY [None]
  - AKATHISIA [None]
  - PALPITATIONS [None]
